FAERS Safety Report 6003246-4 (Version None)
Quarter: 2008Q4

REPORT INFORMATION
  Report Type: 
  Country: None (occurrence: None)
  Receive Date: 20081212
  Receipt Date: 20081212
  Transmission Date: 20090506
  Serious: Yes (Other)
  Sender: FDA-Public Use
  Company Number: None

PATIENT
  Age: 46 Year
  Sex: Female
  Weight: 88.4514 kg

DRUGS (1)
  1. INVEGA [Suspect]
     Indication: BIPOLAR DISORDER
     Dosage: 1 TAB IN THE MORNING EVERTDAY
     Dates: start: 20070407, end: 20081211

REACTIONS (3)
  - ANORGASMIA [None]
  - BREAST DISCHARGE [None]
  - DROOLING [None]
